FAERS Safety Report 7516735-8 (Version None)
Quarter: 2011Q2

REPORT INFORMATION
  Report Type: 
  Country: None (occurrence: None)
  Receive Date: 20110601
  Receipt Date: 20110524
  Transmission Date: 20111010
  Serious: Yes (Other)
  Sender: FDA-Public Use
  Company Number: US-ABBOTT-11P-163-0728207-00

PATIENT
  Sex: Female
  Weight: 49.94 kg

DRUGS (10)
  1. AMBIEN [Concomitant]
     Indication: INSOMNIA
  2. HUMIRA [Suspect]
     Indication: CROHN'S DISEASE
     Dates: start: 20100101, end: 20100101
  3. VITAMINS [Concomitant]
     Indication: VITAMIN SUPPLEMENTATION
  4. HUMIRA [Suspect]
     Dates: start: 20100701, end: 20100701
  5. FIBERCON [Concomitant]
     Indication: MEDICAL DIET
  6. HUMIRA [Suspect]
     Dates: start: 20100101
  7. IMODIUM [Concomitant]
     Indication: DIARRHOEA
  8. FERROUS SULFATE TAB [Concomitant]
     Indication: MINERAL SUPPLEMENTATION
  9. LORTAB [Concomitant]
     Indication: PAIN
  10. UNKNOWN MEDICATION [Concomitant]
     Indication: GASTROINTESTINAL PAIN

REACTIONS (4)
  - DIARRHOEA [None]
  - ABDOMINAL PAIN UPPER [None]
  - FISTULA DISCHARGE [None]
  - VAGINAL HAEMORRHAGE [None]
